FAERS Safety Report 13682857 (Version 1)
Quarter: 2017Q2

REPORT INFORMATION
  Report Type: Spontaneous
  Country: US (occurrence: US)
  Receive Date: 20170623
  Receipt Date: 20170623
  Transmission Date: 20170830
  Serious: No
  Sender: FDA-Public Use
  Company Number: US-MALLINCKRODT-T201700310

PATIENT
  Age: 65 Year
  Sex: Female

DRUGS (15)
  1. AMITIZA [Concomitant]
     Active Substance: LUBIPROSTONE
  2. VITAMIN B COMPLEX [Concomitant]
     Active Substance: CYANOCOBALAMIN\DEXPANTHENOL\NIACINAMIDE\PYRIDOXINE HYDROCHLORIDE\RIBOFLAVIN 5^-PHOSPHATE SODIUM\THIAMINE HYDROCHLORIDE\VITAMIN B COMPLEX
  3. MAGNESIUM [Concomitant]
     Active Substance: MAGNESIUM
  4. MELOXICAM. [Concomitant]
     Active Substance: MELOXICAM
  5. MULTIVITAMIN [Concomitant]
     Active Substance: VITAMINS
  6. BREO ELLIPTA [Concomitant]
     Active Substance: FLUTICASONE FUROATE\VILANTEROL TRIFENATATE
  7. SPIRIVA [Concomitant]
     Active Substance: TIOTROPIUM BROMIDE MONOHYDRATE
  8. BACLOFEN. [Concomitant]
     Active Substance: BACLOFEN
  9. H.P. ACTHAR [Suspect]
     Active Substance: CORTICOTROPIN
     Indication: MULTIPLE SCLEROSIS
     Dosage: 80 UNITS, QD FOR 5 DAYS
     Route: 058
     Dates: start: 20150517
  10. LASIX [Concomitant]
     Active Substance: FUROSEMIDE
  11. LAMICTAL [Concomitant]
     Active Substance: LAMOTRIGINE
  12. TIZANIDINE. [Concomitant]
     Active Substance: TIZANIDINE
  13. VITAMIN D3 [Concomitant]
     Active Substance: CHOLECALCIFEROL
  14. PROVIGIL [Concomitant]
     Active Substance: MODAFINIL
  15. VENTOLIN [Concomitant]
     Active Substance: ALBUTEROL SULFATE

REACTIONS (1)
  - Malaise [Not Recovered/Not Resolved]

NARRATIVE: CASE EVENT DATE: 20170123
